FAERS Safety Report 7611602-3 (Version None)
Quarter: 2011Q3

REPORT INFORMATION
  Report Type: 
  Country: None (occurrence: None)
  Receive Date: 20110715
  Receipt Date: 20110708
  Transmission Date: 20111222
  Serious: Yes (Disabling)
  Sender: FDA-Public Use
  Company Number: GB-GLAXOSMITHKLINE-B0731662A

PATIENT
  Age: 37 Year
  Sex: Male
  Weight: 85 kg

DRUGS (1)
  1. MALARONE [Suspect]
     Route: 048
     Dates: start: 20090729, end: 20090814

REACTIONS (5)
  - DIARRHOEA [None]
  - PYREXIA [None]
  - STEVENS-JOHNSON SYNDROME [None]
  - URINARY TRACT INFECTION [None]
  - URTICARIA [None]
